FAERS Safety Report 6622464-5 (Version None)
Quarter: 2010Q1

REPORT INFORMATION
  Report Type: 
  Country: None (occurrence: None)
  Receive Date: 20100310
  Receipt Date: 20100129
  Transmission Date: 20100710
  Serious: No
  Sender: FDA-Public Use
  Company Number: US-BIOGENIDEC-2010BI003422

PATIENT
  Age: 41 Year
  Sex: Female

DRUGS (1)
  1. AVONEX [Suspect]
     Indication: MULTIPLE SCLEROSIS
     Route: 030
     Dates: start: 20080402

REACTIONS (5)
  - DRUG DOSE OMISSION [None]
  - FATIGUE [None]
  - INCONTINENCE [None]
  - MOBILITY DECREASED [None]
  - MULTIPLE SCLEROSIS [None]
